FAERS Safety Report 11145919 (Version 1)
Quarter: 2015Q2

REPORT INFORMATION
  Report Type: Spontaneous
  Country: US (occurrence: US)
  Receive Date: 20150528
  Receipt Date: 20150528
  Transmission Date: 20150821
  Serious: Yes (Other)
  Sender: FDA-Public Use
  Company Number: US-ASTRAZENECA-2013SE41724

PATIENT
  Age: 15702 Day
  Sex: Female
  Weight: 141.1 kg

DRUGS (7)
  1. PROGRAF [Concomitant]
     Active Substance: TACROLIMUS\TACROLIMUS ANHYDROUS
  2. BYETTA [Suspect]
     Active Substance: EXENATIDE
     Indication: TYPE 2 DIABETES MELLITUS
     Dosage: UNK
     Route: 065
     Dates: start: 200703, end: 2009
  3. CELLCEPT [Concomitant]
     Active Substance: MYCOPHENOLATE MOFETIL\MYCOPHENOLATE MOFETIL HYDROCHLORIDE
  4. OMACOR [Concomitant]
     Active Substance: OMEGA-3-ACID ETHYL ESTERS
  5. ZYLOPRIM [Concomitant]
     Active Substance: ALLOPURINOL
  6. PREDNISONE. [Concomitant]
     Active Substance: PREDNISONE
  7. VITAMIN D [Concomitant]
     Active Substance: CHOLECALCIFEROL

REACTIONS (5)
  - Goitre [Unknown]
  - Thyroid neoplasm [Unknown]
  - Papillary thyroid cancer [Unknown]
  - Metastases to lymph nodes [Unknown]
  - Hypothyroidism [Unknown]

NARRATIVE: CASE EVENT DATE: 20110404
